FAERS Safety Report 8992690 (Version 1)
Quarter: 2013Q1

REPORT INFORMATION
  Report Type: Spontaneous
  Country: DE (occurrence: DE)
  Receive Date: 20130101
  Receipt Date: 20130101
  Transmission Date: 20140127
  Serious: Yes (Death)
  Sender: FDA-Public Use
  Company Number: DE-ROCHE-1174943

PATIENT
  Age: 70 Year
  Sex: Female
  Weight: 62 kg

DRUGS (7)
  1. AVASTIN [Suspect]
     Indication: COLON CANCER
     Dosage: IN 250 ML NACL
     Route: 042
     Dates: start: 20121015, end: 20121106
  2. CAMPTO [Suspect]
     Indication: COLON CANCER
     Dosage: IN 500 ML NACL
     Route: 042
     Dates: start: 20121015, end: 20121113
  3. CALCIUM FOLINATE [Suspect]
     Indication: COLON CANCER
     Dosage: IN 500 ML NACL
     Route: 042
     Dates: start: 20121015, end: 20121113
  4. 5-FU [Suspect]
     Indication: COLON CANCER
     Dosage: IN NACL IN 24 H SUREFUSER
     Route: 042
     Dates: start: 20121015, end: 20121113
  5. DEXAMETHASONE [Concomitant]
     Route: 042
     Dates: start: 20121119
  6. INTRAFUSIN [Concomitant]
     Route: 065
  7. RACECADOTRIL [Concomitant]
     Route: 065

REACTIONS (1)
  - Death [Fatal]
